FAERS Safety Report 17830811 (Version 1)
Quarter: 2020Q2

REPORT INFORMATION
  Report Type: Spontaneous
  Country: US (occurrence: US)
  Receive Date: 20200527
  Receipt Date: 20200527
  Transmission Date: 20200714
  Serious: Yes (Other)
  Sender: FDA-Public Use
  Company Number: US-JNJFOC-20200523885

PATIENT
  Age: 56 Year
  Sex: Female

DRUGS (3)
  1. STELARA [Suspect]
     Active Substance: USTEKINUMAB
     Indication: CROHN^S DISEASE
     Route: 058
     Dates: start: 20180601
  2. ENTOCORT [Concomitant]
     Active Substance: BUDESONIDE
  3. LIALDA [Concomitant]
     Active Substance: MESALAMINE
     Dosage: 3/DAY

REACTIONS (1)
  - Crohn^s disease [Not Recovered/Not Resolved]
